FAERS Safety Report 7380541-8 (Version None)
Quarter: 2011Q1

REPORT INFORMATION
  Report Type: 
  Country: None (occurrence: None)
  Receive Date: 20110329
  Receipt Date: 20110323
  Transmission Date: 20110831
  Serious: Yes (Hospitalization)
  Sender: FDA-Public Use
  Company Number: US-GENZYME-CERZ-1001883

PATIENT

DRUGS (10)
  1. CEREZYME [Suspect]
     Indication: GAUCHER'S DISEASE
     Dosage: 70 U/KG, 1X/W
     Route: 042
     Dates: start: 19980701
  2. CELEBREX [Concomitant]
     Indication: BONE PAIN
     Dosage: 200 MG, PRN
     Dates: start: 19910101
  3. SPIRIVA [Concomitant]
     Indication: CHRONIC OBSTRUCTIVE PULMONARY DISEASE
     Dosage: UNK
     Dates: start: 20060101
  4. CLARITIN [Concomitant]
     Indication: PRODUCT USED FOR UNKNOWN INDICATION
     Dosage: UNK
     Dates: start: 20080101
  5. ASPIRIN [Concomitant]
     Indication: PROPHYLAXIS
     Dosage: 81 MG, QD
  6. XOPENEX [Concomitant]
     Indication: CHRONIC OBSTRUCTIVE PULMONARY DISEASE
     Dosage: UNK
     Dates: start: 20060101
  7. ADVAIR DISKUS 100/50 [Concomitant]
     Indication: CHRONIC OBSTRUCTIVE PULMONARY DISEASE
  8. CRESTOR [Concomitant]
     Indication: LIPIDS INCREASED
     Dosage: 5 MG, UNK
     Dates: start: 20080101
  9. ADVAIR DISKUS 100/50 [Concomitant]
     Indication: PULMONARY HYPERTENSION
     Dosage: UNK
  10. ZOMETA [Concomitant]
     Indication: OSTEOPENIA
     Dosage: 4 MG, UNK

REACTIONS (2)
  - STAPHYLOCOCCAL INFECTION [None]
  - RENAL CANCER [None]
